FAERS Safety Report 7427604-6 (Version None)
Quarter: 2011Q2

REPORT INFORMATION
  Report Type: 
  Country: None (occurrence: None)
  Receive Date: 20110420
  Receipt Date: 20110413
  Transmission Date: 20111010
  Serious: Yes (Hospitalization)
  Sender: FDA-Public Use
  Company Number: US-B.I. PHARMACEUTICALS,INC./RIDGEFIELD-2011-BP-04997BP

PATIENT
  Age: 73 Year
  Sex: Female

DRUGS (8)
  1. FUROSEMIDE [Concomitant]
     Route: 048
  2. PRADAXA [Suspect]
     Indication: ATRIAL FIBRILLATION
  3. VITAMIN D [Concomitant]
  4. AMIODARONE [Concomitant]
     Dosage: 200 MG
  5. PRADAXA [Suspect]
     Indication: CEREBROVASCULAR ACCIDENT PROPHYLAXIS
     Dosage: 150 MG
     Route: 048
     Dates: start: 20101216, end: 20110209
  6. METOPROLOL [Concomitant]
     Dosage: 12.5 MG
  7. POTASSIUM CHLORIDE [Concomitant]
     Dosage: 40 MEQ
     Route: 048
  8. VYTORIN [Concomitant]

REACTIONS (8)
  - DIARRHOEA HAEMORRHAGIC [None]
  - ABDOMINAL PAIN [None]
  - ADRENAL MASS [None]
  - INTESTINAL OBSTRUCTION [None]
  - SHOCK HAEMORRHAGIC [None]
  - PLEURAL EFFUSION [None]
  - DEHYDRATION [None]
  - RETROPERITONEAL HAEMORRHAGE [None]
